FAERS Safety Report 13967009 (Version 1)
Quarter: 2017Q3

REPORT INFORMATION
  Report Type: Spontaneous
  Country: US (occurrence: None)
  Receive Date: 20170912
  Receipt Date: 20170912
  Transmission Date: 20171128
  Serious: No
  Sender: FDA-Public Use
  Company Number: None

PATIENT
  Age: 74 Year
  Sex: Male
  Weight: 91.35 kg

DRUGS (1)
  1. HEPARIN [Suspect]
     Active Substance: HEPARIN SODIUM
     Indication: CARDIOVASCULAR DISORDER
     Dates: start: 20161025, end: 20161025

REACTIONS (6)
  - Bundle branch block [None]
  - Palpitations [None]
  - Heart rate irregular [None]
  - Nodal rhythm [None]
  - Drug hypersensitivity [None]
  - Hypotension [None]

NARRATIVE: CASE EVENT DATE: 20161025
